FAERS Safety Report 25933577 (Version 2)
Quarter: 2025Q4

REPORT INFORMATION
  Report Type: Spontaneous
  Country: US (occurrence: US)
  Receive Date: 20251017
  Receipt Date: 20251017
  Transmission Date: 20260118
  Serious: No
  Sender: SANDOZ
  Company Number: US-SANDOZ-SDZ2025US076229

PATIENT
  Sex: Male

DRUGS (1)
  1. GLATOPA [Suspect]
     Active Substance: GLATIRAMER ACETATE
     Indication: Product used for unknown indication
     Dosage: UNK UNK, TIW(GLATIRAMER ACET INJ 40MG/ML 12LISY)
     Route: 065

REACTIONS (2)
  - Fear of injection [Unknown]
  - Device issue [Unknown]

NARRATIVE: CASE EVENT DATE: 20251013
